FAERS Safety Report 16873676 (Version 1)
Quarter: 2019Q4

REPORT INFORMATION
  Report Type: Spontaneous
  Country: US (occurrence: US)
  Receive Date: 20191001
  Receipt Date: 20191001
  Transmission Date: 20200122
  Serious: Yes (Hospitalization)
  Sender: FDA-Public Use
  Company Number: US-MYLANLABS-2019M1091797

PATIENT
  Age: 63 Year
  Sex: Female

DRUGS (5)
  1. KETAMINE [Suspect]
     Active Substance: KETAMINE
     Indication: MIGRAINE
     Dosage: SUBANAESTHETIC KETAMINE INFUSION UP TO 45 MG/HOUR
     Route: 065
  2. METHYLPREDNISOLONE. [Interacting]
     Active Substance: METHYLPREDNISOLONE
     Indication: MIGRAINE
     Route: 065
  3. DIHYDROERGOTAMINE [Interacting]
     Active Substance: DIHYDROERGOTAMINE
     Indication: MIGRAINE
     Route: 042
  4. VALPROIC ACID. [Interacting]
     Active Substance: VALPROIC ACID
     Indication: MIGRAINE
     Route: 065
  5. PROMETHAZINE [Interacting]
     Active Substance: PROMETHAZINE HYDROCHLORIDE
     Indication: MIGRAINE
     Route: 065

REACTIONS (3)
  - Reversible cerebral vasoconstriction syndrome [Recovered/Resolved]
  - Posterior reversible encephalopathy syndrome [Recovered/Resolved]
  - Drug interaction [Recovered/Resolved]
